FAERS Safety Report 9307718 (Version 2)
Quarter: 2013Q2

REPORT INFORMATION
  Report Type: Spontaneous
  Country: JP (occurrence: JP)
  Receive Date: 20130524
  Receipt Date: 20130603
  Transmission Date: 20140414
  Serious: Yes (Other)
  Sender: FDA-Public Use
  Company Number: JP-MPIJNJ-2013-03950

PATIENT
  Sex: 0

DRUGS (3)
  1. VELCADE [Suspect]
     Indication: PLASMA CELL MYELOMA
     Dosage: 1.3 MG/M2, CYCLIC
     Route: 042
     Dates: start: 20100517
  2. LENALIDOMIDE [Suspect]
     Dosage: UNK
     Route: 048
     Dates: start: 20101015
  3. DEXAMETHASONE [Concomitant]
     Indication: PLASMA CELL MYELOMA
     Dosage: UNK, CYCLIC
     Route: 042
     Dates: start: 20100517

REACTIONS (2)
  - Chronic myeloid leukaemia [Unknown]
  - Neuropathy peripheral [Recovering/Resolving]
